FAERS Safety Report 6446981-6 (Version None)
Quarter: 2009Q4

REPORT INFORMATION
  Report Type: 
  Country: None (occurrence: None)
  Receive Date: 20091119
  Receipt Date: 20091109
  Transmission Date: 20100525
  Serious: Yes (Death, Other)
  Sender: FDA-Public Use
  Company Number: US-PFIZER INC-2009295828

PATIENT
  Sex: Female
  Weight: 77 kg

DRUGS (11)
  1. PROVERA [Suspect]
     Indication: HORMONE REPLACEMENT THERAPY
     Dosage: 20 MG, UNK
     Route: 048
     Dates: start: 19950101, end: 19960101
  2. AYGESTIN [Suspect]
     Indication: HORMONE REPLACEMENT THERAPY
     Dosage: 5 MG, 10 TO 20MG DAILY
     Dates: start: 19950101, end: 19960101
  3. PREMARIN [Suspect]
     Indication: HORMONE REPLACEMENT THERAPY
     Dosage: 0.625 MG, UNK
     Dates: start: 19970101, end: 20020101
  4. WELLBUTRIN [Concomitant]
     Indication: DEPRESSION
     Dosage: UNK
     Dates: start: 19980101, end: 20060101
  5. XANAX [Concomitant]
     Indication: ANXIETY
     Dosage: UNK
     Dates: start: 19980101, end: 20061018
  6. XANAX [Concomitant]
     Indication: DEPRESSION
  7. KLONOPIN [Concomitant]
     Indication: PANIC DISORDER
     Dosage: UNK
     Dates: start: 19880101, end: 20060101
  8. KLONOPIN [Concomitant]
     Indication: ANXIETY DISORDER
  9. VISTARIL [Concomitant]
     Indication: PRURITUS
     Dosage: UNK
     Dates: start: 19880101, end: 20060101
  10. LEXAPRO [Concomitant]
     Indication: ANXIETY
     Dosage: UNK
     Dates: start: 19880101, end: 20060101
  11. PREVACID [Concomitant]
     Indication: ULCER
     Dosage: UNK
     Dates: start: 20000101, end: 20060101

REACTIONS (4)
  - BREAST CANCER METASTATIC [None]
  - NEUTROPENIA [None]
  - PLEURAL EFFUSION [None]
  - THROMBOSIS [None]
